FAERS Safety Report 15919819 (Version 1)
Quarter: 2019Q1

REPORT INFORMATION
  Report Type: Spontaneous
  Country: US (occurrence: US)
  Receive Date: 20190205
  Receipt Date: 20190205
  Transmission Date: 20190417
  Serious: No
  Sender: FDA-Public Use
  Company Number: US-ROCHE-2126642

PATIENT
  Age: 40 Year
  Sex: Female
  Weight: 82.63 kg

DRUGS (21)
  1. XOLAIR [Suspect]
     Active Substance: OMALIZUMAB
     Route: 058
     Dates: start: 20180424
  2. PAZEO [Concomitant]
     Active Substance: OLOPATADINE HYDROCHLORIDE
     Indication: HYPERSENSITIVITY
     Route: 047
  3. EPIPEN [Concomitant]
     Active Substance: EPINEPHRINE
     Indication: HYPERSENSITIVITY
     Route: 030
  4. ALLEGRA-D [Concomitant]
     Active Substance: FEXOFENADINE\PSEUDOEPHEDRINE
     Indication: HYPERSENSITIVITY
     Route: 048
  5. SYNTHROID [Concomitant]
     Active Substance: LEVOTHYROXINE SODIUM
     Indication: HYPOTHYROIDISM
     Route: 048
  6. PROVENTIL HFA [Concomitant]
     Active Substance: ALBUTEROL SULFATE
     Indication: ASTHMA
     Route: 050
  7. PROVENTIL HFA [Concomitant]
     Active Substance: ALBUTEROL SULFATE
     Indication: HYPERSENSITIVITY
  8. XOLAIR [Suspect]
     Active Substance: OMALIZUMAB
     Route: 058
     Dates: start: 20150408
  9. XOLAIR [Suspect]
     Active Substance: OMALIZUMAB
     Route: 058
     Dates: start: 20170302
  10. XOLAIR [Suspect]
     Active Substance: OMALIZUMAB
     Route: 058
     Dates: start: 20171108
  11. IMITREX [Concomitant]
     Active Substance: SUMATRIPTAN SUCCINATE
     Indication: MIGRAINE
     Route: 048
  12. SINGULAIR [Concomitant]
     Active Substance: MONTELUKAST SODIUM
     Indication: HYPERSENSITIVITY
     Route: 048
  13. ZYRTEC [Concomitant]
     Active Substance: CETIRIZINE HYDROCHLORIDE
     Indication: HYPERSENSITIVITY
     Route: 048
  14. XOLAIR [Suspect]
     Active Substance: OMALIZUMAB
     Route: 058
     Dates: start: 20170912
  15. SPIRONOLACTONE. [Concomitant]
     Active Substance: SPIRONOLACTONE
     Indication: ACNE
     Route: 048
  16. TRIAMCINOLONE ACETONIDE. [Concomitant]
     Active Substance: TRIAMCINOLONE ACETONIDE
     Indication: RASH
     Route: 061
  17. DYMISTA [Concomitant]
     Active Substance: AZELASTINE HYDROCHLORIDE\FLUTICASONE PROPIONATE
     Indication: HYPERSENSITIVITY
     Route: 045
  18. SYMBICORT [Concomitant]
     Active Substance: BUDESONIDE\FORMOTEROL FUMARATE DIHYDRATE
     Indication: ASTHMA
     Route: 050
  19. XOLAIR [Suspect]
     Active Substance: OMALIZUMAB
     Indication: IDIOPATHIC URTICARIA
     Route: 058
  20. XOLAIR [Suspect]
     Active Substance: OMALIZUMAB
     Route: 058
     Dates: start: 20170425
  21. HCTZ [Concomitant]
     Active Substance: HYDROCHLOROTHIAZIDE
     Indication: ABDOMINAL DISTENSION
     Route: 048

REACTIONS (1)
  - Leukocytosis [Unknown]

NARRATIVE: CASE EVENT DATE: 20170306
